FAERS Safety Report 6328424-6 (Version None)
Quarter: 2009Q3

REPORT INFORMATION
  Report Type: 
  Country: None (occurrence: None)
  Receive Date: 20090825
  Receipt Date: 20090714
  Transmission Date: 20100115
  Serious: No
  Sender: FDA-Public Use
  Company Number: US-ABBOTT-09P-163-0585527-00

PATIENT
  Age: 58 Year
  Sex: Female
  Weight: 63.56 kg

DRUGS (8)
  1. SYNTHROID [Suspect]
     Indication: AUTOIMMUNE THYROIDITIS
     Route: 048
     Dates: start: 20080501, end: 20080501
  2. SYNTHROID [Suspect]
     Dosage: 1.5 IN 1 DAY
     Route: 048
     Dates: start: 20080501, end: 20090620
  3. SYNTHROID [Suspect]
     Dosage: .75
     Route: 048
     Dates: start: 20090620, end: 20090703
  4. SYNTHROID [Suspect]
     Dosage: 0.5
     Route: 048
     Dates: start: 20090704
  5. SYNTHROID [Suspect]
     Indication: AUTOIMMUNE THYROIDITIS
     Dosage: 1.5 IN 1 DAY
     Route: 048
     Dates: start: 20080501, end: 20090620
  6. SYNTHROID [Suspect]
     Dosage: .75 IN ONE DAY
     Route: 048
     Dates: start: 20090620, end: 20090703
  7. SYNTHROID [Suspect]
     Dosage: 0.5 IN ONE DAY
     Route: 048
     Dates: start: 20090704
  8. ACTONEL [Concomitant]
     Indication: OSTEOPOROSIS
     Route: 048

REACTIONS (7)
  - BLOOD THYROID STIMULATING HORMONE DECREASED [None]
  - ERYTHEMA [None]
  - IMPAIRED WORK ABILITY [None]
  - INCORRECT DOSE ADMINISTERED [None]
  - INSOMNIA [None]
  - PRURITUS [None]
  - RASH [None]
